FAERS Safety Report 17394920 (Version 1)
Quarter: 2020Q1

REPORT INFORMATION
  Report Type: Spontaneous
  Country: CA (occurrence: CA)
  Receive Date: 20200210
  Receipt Date: 20200210
  Transmission Date: 20200409
  Serious: Yes (Life-Threatening, Hospitalization)
  Sender: FDA-Public Use
  Company Number: CA-TEVA-2020-CA-1179541

PATIENT
  Age: 18 Year
  Sex: Male

DRUGS (7)
  1. FORANE [Suspect]
     Active Substance: ISOFLURANE
     Indication: INDUCTION OF ANAESTHESIA
     Route: 055
  2. ROCURONIUM BROMIDE. [Suspect]
     Active Substance: ROCURONIUM BROMIDE
     Indication: PRODUCT USED FOR UNKNOWN INDICATION
     Route: 065
  3. CLINDAMYCIN HYDROCHLORIDE. [Suspect]
     Active Substance: CLINDAMYCIN HYDROCHLORIDE
     Indication: PRODUCT USED FOR UNKNOWN INDICATION
     Route: 065
  4. DEXAMETHASONE. [Suspect]
     Active Substance: DEXAMETHASONE
     Indication: PRODUCT USED FOR UNKNOWN INDICATION
     Route: 065
  5. SUFENTANIL CITRATE. [Suspect]
     Active Substance: SUFENTANIL CITRATE
     Indication: PRODUCT USED FOR UNKNOWN INDICATION
     Route: 008
  6. PROPOFOL. [Suspect]
     Active Substance: PROPOFOL
     Indication: PRODUCT USED FOR UNKNOWN INDICATION
     Route: 065
  7. MIDAZOLAM HYDROCHLORIDE. [Suspect]
     Active Substance: MIDAZOLAM HYDROCHLORIDE
     Indication: PRODUCT USED FOR UNKNOWN INDICATION
     Route: 030

REACTIONS (2)
  - Rash [Recovered/Resolved]
  - Hyperthermia malignant [Recovered/Resolved]
